FAERS Safety Report 6220321-X (Version None)
Quarter: 2009Q2

REPORT INFORMATION
  Report Type: 
  Country: None (occurrence: None)
  Receive Date: 20090521
  Receipt Date: 20090514
  Transmission Date: 20091009
  Serious: Yes (Other)
  Sender: FDA-Public Use
  Company Number: JHP200900147

PATIENT
  Age: 24 Year
  Sex: Female

DRUGS (1)
  1. APLISOL [Suspect]
     Indication: TUBERCULIN TEST
     Dosage: 0.1 ML, SINGLE, INTRADERMAL
     Route: 023
     Dates: start: 20080801, end: 20080801

REACTIONS (7)
  - BACK DISORDER [None]
  - CUSHINGOID [None]
  - INJECTION SITE INDURATION [None]
  - JOINT SWELLING [None]
  - OEDEMA PERIPHERAL [None]
  - PROTEIN URINE PRESENT [None]
  - SWELLING [None]
